FAERS Safety Report 26060863 (Version 1)
Quarter: 2025Q4

REPORT INFORMATION
  Report Type: Spontaneous
  Country: TW (occurrence: TW)
  Receive Date: 20251118
  Receipt Date: 20251118
  Transmission Date: 20260118
  Serious: Yes (Other)
  Sender: ASTELLAS
  Company Number: TW-ASTELLAS-2025-AER-062402

PATIENT
  Age: 61 Year
  Sex: Female

DRUGS (5)
  1. VYLOY [Suspect]
     Active Substance: ZOLBETUXIMAB-CLZB
     Indication: Metastatic gastric cancer
     Dosage: X2
     Route: 065
     Dates: start: 20250922, end: 20251016
  2. FLUOROURACIL\LEUCOVORIN CALCIUM\OXALIPLATIN [Concomitant]
     Active Substance: FLUOROURACIL\LEUCOVORIN CALCIUM\OXALIPLATIN
     Indication: Metastatic gastric cancer
     Dosage: X2
     Route: 065
     Dates: start: 20250922, end: 20251016
  3. ROCEPHIN [Concomitant]
     Active Substance: CEFTRIAXONE SODIUM
     Indication: Product used for unknown indication
     Route: 065
     Dates: start: 20250926
  4. ROCEPHIN [Concomitant]
     Active Substance: CEFTRIAXONE SODIUM
     Route: 065
     Dates: start: 20250916, end: 20250923
  5. Tazocin [Concomitant]
     Indication: Product used for unknown indication
     Route: 065
     Dates: start: 20250923, end: 20250926

REACTIONS (1)
  - Spontaneous bacterial peritonitis [Unknown]

NARRATIVE: CASE EVENT DATE: 20250101
